FAERS Safety Report 7108815-6 (Version None)
Quarter: 2010Q4

REPORT INFORMATION
  Report Type: 
  Country: None (occurrence: None)
  Receive Date: 20101115
  Receipt Date: 20101115
  Transmission Date: 20110411
  Serious: Yes (Other)
  Sender: FDA-Public Use
  Company Number: None

PATIENT
  Age: 70 Year
  Sex: Female
  Weight: 97.5234 kg

DRUGS (4)
  1. BRIMONIDINE HCL SOLUTION 2% [Suspect]
     Indication: GLAUCOMA
     Dosage: 1 DROP 3X DAY EACH EYE
     Route: 047
     Dates: start: 20100317, end: 20100715
  2. BRIMONIDINE HCL SOLUTION 2% [Suspect]
     Indication: PROPHYLAXIS
     Dosage: 1 DROP 3X DAY EACH EYE
     Route: 047
     Dates: start: 20100317, end: 20100715
  3. DORZOLAMIDE HYDROCHLORIDE [Suspect]
     Indication: GLAUCOMA
     Dosage: 1 DROP 3X DAY EACH EYE
     Route: 047
     Dates: start: 20100716, end: 20100909
  4. DORZOLAMIDE HYDROCHLORIDE [Suspect]
     Indication: PROPHYLAXIS
     Dosage: 1 DROP 3X DAY EACH EYE
     Route: 047
     Dates: start: 20100716, end: 20100909

REACTIONS (8)
  - DRUG HYPERSENSITIVITY [None]
  - ECONOMIC PROBLEM [None]
  - FATIGUE [None]
  - PAIN [None]
  - SCAB [None]
  - SKIN DISCOLOURATION [None]
  - SKIN EXFOLIATION [None]
  - SKIN IRRITATION [None]
